FAERS Safety Report 14013948 (Version 2)
Quarter: 2017Q4

REPORT INFORMATION
  Report Type: Spontaneous
  Country: US (occurrence: US)
  Receive Date: 20170926
  Receipt Date: 20171012
  Transmission Date: 20180321
  Serious: Yes (Other)
  Sender: FDA-Public Use
  Company Number: US-009507513-1709USA011578

PATIENT
  Age: 84 Year
  Sex: Female

DRUGS (1)
  1. KEYTRUDA [Suspect]
     Active Substance: PEMBROLIZUMAB
     Indication: MALIGNANT MELANOMA STAGE IV
     Dosage: EVERY TWO WEEKS
     Dates: start: 201402, end: 201409

REACTIONS (3)
  - Squamous cell carcinoma of skin [Unknown]
  - Psoriasis [Recovering/Resolving]
  - Keratoacanthoma [Recovering/Resolving]

NARRATIVE: CASE EVENT DATE: 201404
